FAERS Safety Report 8555431-5 (Version None)
Quarter: 2012Q3

REPORT INFORMATION
  Report Type: 
  Country: None (occurrence: None)
  Receive Date: 20120731
  Receipt Date: 20110825
  Transmission Date: 20120928
  Serious: Yes (Other)
  Sender: FDA-Public Use
  Company Number: US-ASTRAZENECA-2011SE12629

PATIENT
  Sex: Female

DRUGS (15)
  1. NORVASC [Concomitant]
     Dates: start: 20030617
  2. MEDROXYPROGESTERONE [Concomitant]
     Dates: start: 20030716
  3. SEROQUEL [Suspect]
     Route: 048
     Dates: start: 20010604
  4. NORTRIPTYLINE HCL [Concomitant]
     Dates: start: 20010411
  5. SERZONE [Concomitant]
     Dates: start: 20010411
  6. CELEXA [Concomitant]
     Dates: start: 20010418
  7. MEDROXYPROGESTERONE [Concomitant]
     Dosage: 10 M
     Dates: start: 20010430
  8. ACIPHEX [Concomitant]
     Dates: start: 20010430
  9. UNI-DAILY [Concomitant]
     Dates: start: 20010530
  10. FERROUS SULFATE TAB [Concomitant]
     Dates: start: 20010410
  11. NORVASC [Concomitant]
     Dates: start: 20010430
  12. NEXIUM [Concomitant]
     Dates: start: 20030522
  13. VIOXX [Concomitant]
     Dates: start: 20010615
  14. RISPERDAL [Concomitant]
     Dates: start: 20010615
  15. WELLBUTRIN SR [Concomitant]
     Dates: start: 20030522

REACTIONS (3)
  - DIABETIC COMA [None]
  - PANCREATITIS [None]
  - TYPE 2 DIABETES MELLITUS [None]
